FAERS Safety Report 6186630-8 (Version None)
Quarter: 2009Q2

REPORT INFORMATION
  Report Type: 
  Country: None (occurrence: None)
  Receive Date: 20090512
  Receipt Date: 20090429
  Transmission Date: 20091009
  Serious: Yes (Hospitalization, Other)
  Sender: FDA-Public Use
  Company Number: US-PFIZER INC-2008059536

PATIENT
  Sex: Female
  Weight: 81 kg

DRUGS (2)
  1. PROVERA [Suspect]
     Indication: HORMONE REPLACEMENT THERAPY
     Dosage: 2.5 MG, UNK
     Route: 048
     Dates: start: 19840101, end: 19991101
  2. PREMARIN [Suspect]
     Indication: HORMONE REPLACEMENT THERAPY
     Dosage: 1.25 MG, UNK
     Dates: start: 19840101, end: 19991101

REACTIONS (2)
  - BONE NEOPLASM MALIGNANT [None]
  - BREAST CANCER FEMALE [None]
